FAERS Safety Report 7528857-6 (Version None)
Quarter: 2011Q2

REPORT INFORMATION
  Report Type: 
  Country: None (occurrence: None)
  Receive Date: 20110607
  Receipt Date: 20110124
  Transmission Date: 20111010
  Serious: No
  Sender: FDA-Public Use
  Company Number: US-ASTRAZENECA-2011SE03920

PATIENT
  Sex: Male

DRUGS (3)
  1. ZANTAC OTC [Concomitant]
  2. PEPCID OTC [Concomitant]
  3. PRILOSEC OTC [Suspect]
     Route: 048

REACTIONS (5)
  - DIARRHOEA [None]
  - HYPERCHLORHYDRIA [None]
  - DYSPHONIA [None]
  - NAUSEA [None]
  - VOMITING [None]
